FAERS Safety Report 4645236-X (Version None)
Quarter: 2005Q2

REPORT INFORMATION
  Report Type: 
  Country: None (occurrence: None)
  Receive Date: 20050426
  Receipt Date: 20050420
  Transmission Date: 20051028
  Serious: Yes (Death, Hospitalization)
  Sender: FDA-Public Use
  Company Number: SE-GLAXOSMITHKLINE-B0379013A

PATIENT
  Age: 56 Year
  Sex: Female

DRUGS (1)
  1. ZYBAN [Suspect]
     Indication: DRUG USE FOR UNKNOWN INDICATION
     Route: 048
     Dates: start: 20020101, end: 20020101

REACTIONS (3)
  - MALIGNANT RESPIRATORY TRACT NEOPLASM [None]
  - METASTASES TO LYMPH NODES [None]
  - METASTASES TO SKIN [None]
